FAERS Safety Report 8207990-X (Version None)
Quarter: 2012Q1

REPORT INFORMATION
  Report Type: 
  Country: None (occurrence: None)
  Receive Date: 20120227
  Receipt Date: 20111102
  Transmission Date: 20120608
  Serious: No
  Sender: FDA-Public Use
  Company Number: 338674

PATIENT
  Age: 63 Year
  Sex: Female
  Weight: 67.1 kg

DRUGS (4)
  1. METFORMIN HCL [Concomitant]
  2. TRICOR [Concomitant]
  3. VICTOZA [Suspect]
     Indication: TYPE 2 DIABETES MELLITUS
     Dosage: , SUBCUTANEOUS
     Route: 058
  4. ADENOSINE [Concomitant]

REACTIONS (6)
  - DECREASED APPETITE [None]
  - CONSTIPATION [None]
  - INSOMNIA [None]
  - DIARRHOEA [None]
  - WEIGHT FLUCTUATION [None]
  - NAUSEA [None]
